FAERS Safety Report 8988547 (Version 1)
Quarter: 2012Q4

REPORT INFORMATION
  Report Type: Spontaneous
  Country: GB (occurrence: None)
  Receive Date: 20121218
  Receipt Date: 20121218
  Transmission Date: 20130627
  Serious: Yes (Life-Threatening, Hospitalization, Disabling)
  Sender: FDA-Public Use
  Company Number: FK201203793

PATIENT
  Age: 89 Year
  Sex: Female

DRUGS (5)
  1. SODIUM CHLORIDE 0.9% FLUSH [Suspect]
     Indication: ULCER
     Route: 042
     Dates: start: 201202, end: 201206
  2. DIGOXIN (DIGOXIN) [Concomitant]
  3. HUMULIN (INSULIN HUMAN) [Concomitant]
  4. MIXTARD (INITARD /00634701/) [Concomitant]
  5. RANITIDINE (RANITIDINE HYDROCHLORIDE) [Concomitant]

REACTIONS (2)
  - Skin ulcer [None]
  - Leg amputation [None]
